FAERS Safety Report 5685894-4 (Version None)
Quarter: 2008Q1

REPORT INFORMATION
  Report Type: 
  Country: None (occurrence: None)
  Receive Date: 20080328
  Receipt Date: 20080319
  Transmission Date: 20080703
  Serious: Yes (Other)
  Sender: FDA-Public Use
  Company Number: GB-BAYER-200810752BNE

PATIENT
  Age: 39 Year
  Sex: Female

DRUGS (4)
  1. MIRENA [Suspect]
     Indication: MENORRHAGIA
     Route: 015
     Dates: start: 20070815, end: 20080125
  2. CITALOPRAM [Concomitant]
     Indication: DEPRESSION
     Route: 048
     Dates: start: 20050106
  3. DICLOFENAC SODIUM [Concomitant]
     Indication: PAIN IN EXTREMITY
     Route: 048
     Dates: start: 20070801, end: 20071001
  4. MEFENAMIC ACID [Concomitant]
     Indication: MENORRHAGIA
     Route: 048
     Dates: start: 20071107, end: 20071210

REACTIONS (4)
  - HYPERHIDROSIS [None]
  - LIVER FUNCTION TEST ABNORMAL [None]
  - MALAISE [None]
  - VAGINAL HAEMORRHAGE [None]
